FAERS Safety Report 23238133 (Version 1)
Quarter: 2023Q4

REPORT INFORMATION
  Report Type: Report from Study
  Country: DE (occurrence: DE)
  Receive Date: 20231129
  Receipt Date: 20231129
  Transmission Date: 20240109
  Serious: Yes (Other)
  Sender: FDA-Public Use
  Company Number: DE-UCBSA-2023050454

PATIENT
  Age: 25 Year
  Sex: Male
  Weight: 180 kg

DRUGS (2)
  1. BIMEKIZUMAB [Suspect]
     Active Substance: BIMEKIZUMAB
     Indication: Psoriasis
     Dosage: 320 MILLIGRAM, EV 8 WEEKS
     Route: 058
     Dates: start: 20230424
  2. CANDESARTAN [Concomitant]
     Active Substance: CANDESARTAN
     Indication: Hypertension
     Dosage: 16 MILLIGRAM, 2X/DAY (BID)
     Route: 048
     Dates: start: 202104

REACTIONS (2)
  - Testicular abscess [Recovered/Resolved]
  - Abscess drainage [Recovered/Resolved]

NARRATIVE: CASE EVENT DATE: 20231011
